FAERS Safety Report 14113342 (Version 1)
Quarter: 2017Q4

REPORT INFORMATION
  Report Type: Spontaneous
  Country: US (occurrence: US)
  Receive Date: 20171023
  Receipt Date: 20171023
  Transmission Date: 20180321
  Serious: Yes (Hospitalization, Other)
  Sender: FDA-Public Use
  Company Number: US-AMGEN-USASP2017158727

PATIENT
  Sex: Female

DRUGS (4)
  1. EPOGEN [Suspect]
     Active Substance: ERYTHROPOIETIN
     Indication: NEPHROGENIC ANAEMIA
     Dosage: UNK
     Route: 065
  2. ARANESP [Suspect]
     Active Substance: DARBEPOETIN ALFA
     Dosage: 40 MG, QWK
     Route: 065
  3. ARANESP [Suspect]
     Active Substance: DARBEPOETIN ALFA
     Indication: NEPHROGENIC ANAEMIA
     Dosage: UNK
     Route: 065
  4. EPOGEN [Suspect]
     Active Substance: ERYTHROPOIETIN
     Dosage: 100 MG, 3 TIMES/WK
     Route: 065

REACTIONS (4)
  - Menstrual disorder [Not Recovered/Not Resolved]
  - Drug ineffective [Unknown]
  - Haemoglobin decreased [Unknown]
  - Blindness [Not Recovered/Not Resolved]
